FAERS Safety Report 9470151 (Version 1)
Quarter: 2013Q3

REPORT INFORMATION
  Report Type: Spontaneous
  Country: US (occurrence: None)
  Receive Date: 20130820
  Receipt Date: 20130820
  Transmission Date: 20140515
  Serious: No
  Sender: FDA-Public Use
  Company Number: None

PATIENT
  Age: 57 Year
  Sex: Female
  Weight: 70.31 kg

DRUGS (1)
  1. PROMETHAZINE DM [Suspect]
     Indication: COUGH
     Dosage: 1 TEASPOON?FOUR TIMES DAILY?TAKEN BY MOUTH?
     Route: 048
     Dates: start: 20130816, end: 20130817

REACTIONS (1)
  - Cough [None]
